FAERS Safety Report 13989489 (Version 1)
Quarter: 2017Q3

REPORT INFORMATION
  Report Type: Spontaneous
  Country: US (occurrence: US)
  Receive Date: 20170920
  Receipt Date: 20170920
  Transmission Date: 20171128
  Serious: Yes (Other)
  Sender: FDA-Public Use
  Company Number: US-CIPLA LTD.-2017US16609

PATIENT

DRUGS (10)
  1. ATAZANAVIR [Interacting]
     Active Substance: ATAZANAVIR
     Indication: HIV INFECTION
     Dosage: 300 MG, UNK
     Route: 048
  2. RITONAVIR. [Suspect]
     Active Substance: RITONAVIR
     Indication: HIV INFECTION
     Dosage: 100 MG, BID
     Route: 048
  3. VARDENAFIL (UNDECLARED INGREDIENT) [Suspect]
     Active Substance: VARDENAFIL
  4. BLACK ANT HERBAL SUPPLEMENT [Interacting]
     Active Substance: HERBALS
     Indication: ERECTILE DYSFUNCTION
     Dosage: UNK
     Route: 065
  5. SILDENAFIL (UNDECLARED INGREDIENT) [Suspect]
     Active Substance: SILDENAFIL
  6. METHAMPHETAMINE [Interacting]
     Active Substance: METHAMPHETAMINE
     Indication: ERECTILE DYSFUNCTION
     Dosage: UNK
     Route: 065
  7. PHENYLEPHRINE [Suspect]
     Active Substance: PHENYLEPHRINE\PHENYLEPHRINE HYDROCHLORIDE
     Indication: PRIAPISM
     Dosage: UNK
     Route: 065
  8. PHENYLEPHRINE [Suspect]
     Active Substance: PHENYLEPHRINE\PHENYLEPHRINE HYDROCHLORIDE
     Dosage: 500 ?G/ML
     Route: 065
  9. AILDENAFIL (UNDECLARED INGREDIENT) [Suspect]
     Active Substance: AILDENAFIL
  10. ABACAVIR/LAMIVUDINE [Suspect]
     Active Substance: ABACAVIR\LAMIVUDINE
     Indication: HIV INFECTION
     Dosage: 600/300 MG DAILY
     Route: 048

REACTIONS (6)
  - Drug ineffective [Unknown]
  - Contraindication to medical treatment [Unknown]
  - Product formulation issue [None]
  - Priapism [Recovering/Resolving]
  - Drug interaction [Unknown]
  - Toxicologic test abnormal [None]
